FAERS Safety Report 13459885 (Version 2)
Quarter: 2017Q2

REPORT INFORMATION
  Report Type: Report from Study
  Country: US (occurrence: US)
  Receive Date: 20170420
  Receipt Date: 20170428
  Transmission Date: 20170830
  Serious: Yes (Other)
  Sender: FDA-Public Use
  Company Number: PHEH2017US011527

PATIENT
  Age: 59 Year
  Sex: Female

DRUGS (1)
  1. SANDIMMUNE [Suspect]
     Active Substance: CYCLOSPORINE
     Indication: PRODUCT USED FOR UNKNOWN INDICATION
     Dosage: 12 DF, QD
     Route: 048
     Dates: start: 20151230

REACTIONS (2)
  - Malaise [Unknown]
  - Gastroenteritis viral [Unknown]

NARRATIVE: CASE EVENT DATE: 20170418
